FAERS Safety Report 20291051 (Version 1)
Quarter: 2022Q1

REPORT INFORMATION
  Report Type: Spontaneous
  Country: US (occurrence: None)
  Receive Date: 20220103
  Receipt Date: 20220103
  Transmission Date: 20220423
  Serious: No
  Sender: FDA-Public Use
  Company Number: None

PATIENT
  Age: 29 Year
  Sex: Female
  Weight: 67.5 kg

DRUGS (1)
  1. RYBELSUS [Suspect]
     Active Substance: SEMAGLUTIDE
     Indication: Insulin resistance
     Dates: start: 20210820, end: 20211229

REACTIONS (5)
  - Abdominal pain [None]
  - Vomiting projectile [None]
  - Diarrhoea [None]
  - Urticaria [None]
  - Syncope [None]

NARRATIVE: CASE EVENT DATE: 20211114
